APPROVED DRUG PRODUCT: ROPIVACAINE HYDROCHLORIDE
Active Ingredient: ROPIVACAINE HYDROCHLORIDE
Strength: 400MG/200ML (2MG/ML)
Dosage Form/Route: SOLUTION;INJECTION
Application: A212808 | Product #006 | TE Code: AP
Applicant: CAPLIN STERILES LTD
Approved: May 23, 2024 | RLD: No | RS: No | Type: RX